FAERS Safety Report 10959782 (Version 1)
Quarter: 2015Q1

REPORT INFORMATION
  Report Type: Spontaneous
  Country: US (occurrence: None)
  Receive Date: 20150325
  Receipt Date: 20150325
  Transmission Date: 20150721
  Serious: Yes (Other)
  Sender: FDA-Public Use
  Company Number: 001884787A

PATIENT
  Age: 56 Year
  Sex: Female

DRUGS (2)
  1. MEANINGFUL BEAUTY CINDY CRAWFORD SKIN BRIGHTENING DECOLLETE AND NECK TREATMENT SPF 15 [Suspect]
     Active Substance: AVOBENZONE\OCTINOXATE\OCTISALATE\OXYBENZONE
     Dosage: ONCE DAILY DERMAL
     Route: 061
     Dates: start: 20150217, end: 20150218
  2. MEANINGFUL BEAUTY DAY CREAM SPF 20 [Suspect]
     Active Substance: AVOBENZONE\OCTINOXATE\OCTISALATE\OXYBENZONE
     Dosage: ONCE DAILY DERMAL
     Route: 061
     Dates: start: 20150217, end: 20150218

REACTIONS (2)
  - Throat tightness [None]
  - Rash [None]

NARRATIVE: CASE EVENT DATE: 20150218
